FAERS Safety Report 5332861-6 (Version None)
Quarter: 2007Q2

REPORT INFORMATION
  Report Type: 
  Country: None (occurrence: None)
  Receive Date: 20070521
  Receipt Date: 20070425
  Transmission Date: 20071010
  Serious: Yes (Death)
  Sender: FDA-Public Use
  Company Number: 032-100

PATIENT
  Sex: 0

DRUGS (3)
  1. TEVETEN [Suspect]
     Dosage: 600 MG DAILY
  2. METFORMIN HCL [Concomitant]
  3. BENDROFLUAZIDE [Concomitant]

REACTIONS (6)
  - CAUDAL REGRESSION SYNDROME [None]
  - DRUG EXPOSURE DURING PREGNANCY [None]
  - HYPOPERFUSION [None]
  - INTRA-UTERINE DEATH [None]
  - PULMONARY HYPOPLASIA [None]
  - STILLBIRTH [None]
